FAERS Safety Report 5131613-X (Version None)
Quarter: 2006Q4

REPORT INFORMATION
  Report Type: 
  Country: None (occurrence: None)
  Receive Date: 20061020
  Receipt Date: 20061012
  Transmission Date: 20070319
  Serious: Yes (Other)
  Sender: FDA-Public Use
  Company Number: PHBS2006JP16027

PATIENT
  Age: 75 Year
  Sex: Female

DRUGS (6)
  1. FASTIC [Suspect]
     Indication: DIABETES MELLITUS
     Dosage: 270 MG, UNK
     Route: 048
     Dates: start: 20020911
  2. MAGMITT [Suspect]
     Dosage: 330 MG/DAY
     Route: 048
     Dates: start: 20040816
  3. WARFARIN SODIUM [Concomitant]
     Dosage: 3 MG, UNK
     Dates: start: 20020710
  4. DIGOXIN [Concomitant]
     Dosage: 0.25 DF, UNK
  5. NITOROL [Concomitant]
     Dosage: 40 DF, UNK
  6. NORVASC [Concomitant]
     Dosage: 5 DF, UNK

REACTIONS (1)
  - PROTHROMBIN TIME PROLONGED [None]
